FAERS Safety Report 23821072 (Version 1)
Quarter: 2024Q2

REPORT INFORMATION
  Report Type: Spontaneous
  Country: IT (occurrence: IT)
  Receive Date: 20240506
  Receipt Date: 20240506
  Transmission Date: 20240715
  Serious: Yes (Hospitalization, Other)
  Sender: FDA-Public Use
  Company Number: IT-INSUD PHARMA-2404IT03622

PATIENT

DRUGS (3)
  1. FULVESTRANT [Suspect]
     Active Substance: FULVESTRANT
     Indication: Breast cancer metastatic
     Dosage: RESUMED, WITHOUT PALBOCICLIB
     Route: 065
  2. FULVESTRANT [Suspect]
     Active Substance: FULVESTRANT
     Dosage: FIRST ADMINISTRATION, WITH PALBOCICLIB
     Route: 065
  3. PALBOCICLIB [Suspect]
     Active Substance: PALBOCICLIB
     Indication: Breast cancer metastatic
     Dosage: FIRST ADMINISTRATION, WITH FULVESTRANT
     Route: 065

REACTIONS (5)
  - Interstitial lung disease [Recovering/Resolving]
  - Acute respiratory failure [Recovered/Resolved]
  - Dyspnoea [Recovering/Resolving]
  - Haemoptysis [Recovered/Resolved]
  - Leukocytosis [Recovered/Resolved]
